FAERS Safety Report 21330580 (Version 1)
Quarter: 2022Q3

REPORT INFORMATION
  Report Type: Spontaneous
  Country: US (occurrence: None)
  Receive Date: 20220913
  Receipt Date: 20220913
  Transmission Date: 20221026
  Serious: Yes (Death, Life-Threatening, Hospitalization, Other)
  Sender: FDA-Public Use
  Company Number: 2022A269260

PATIENT
  Age: 22129 Day
  Sex: Male
  Weight: 70.8 kg

DRUGS (42)
  1. EVUSHELD [Suspect]
     Active Substance: CILGAVIMAB\TIXAGEVIMAB
     Indication: Lung transplant
     Dosage: 150.0MG ONCE/SINGLE ADMINISTRATION
     Route: 030
     Dates: start: 20220204, end: 20220204
  2. EVUSHELD [Suspect]
     Active Substance: CILGAVIMAB\TIXAGEVIMAB
     Indication: COVID-19
     Dosage: 150.0MG ONCE/SINGLE ADMINISTRATION
     Route: 030
     Dates: start: 20220204, end: 20220204
  3. EVUSHELD [Suspect]
     Active Substance: CILGAVIMAB\TIXAGEVIMAB
     Indication: Lung transplant
     Dosage: 150.0MG ONCE/SINGLE ADMINISTRATION
     Route: 030
     Dates: start: 20220209, end: 20220209
  4. EVUSHELD [Suspect]
     Active Substance: CILGAVIMAB\TIXAGEVIMAB
     Indication: COVID-19
     Dosage: 150.0MG ONCE/SINGLE ADMINISTRATION
     Route: 030
     Dates: start: 20220209, end: 20220209
  5. OMEPRAZOLE [Suspect]
     Active Substance: OMEPRAZOLE
     Indication: Product used for unknown indication
     Route: 048
  6. BUDESONIDE [Concomitant]
     Active Substance: BUDESONIDE
     Dosage: 25MG\2ML
  7. MODERNA COVID-19 VACCINE [Concomitant]
     Active Substance: ELASOMERAN
     Indication: Lung transplant
     Dosage: 1ST DOSE:26 FEB 2021; 2ND DOSE: 26 MAR 2021; 3RD DOSE: 7TH SEP 2021
  8. TACROLIMUS/PROGRAF [Concomitant]
     Indication: Transplant rejection
     Dosage: 1.5/1.0 MG
  9. PREDNISONE [Concomitant]
     Active Substance: PREDNISONE
     Indication: Transplant rejection
  10. URSODIOL [Concomitant]
     Active Substance: URSODIOL
     Indication: Enzyme level abnormal
  11. ACYCLOVIR [Concomitant]
     Active Substance: ACYCLOVIR
     Indication: Herpes simplex
  12. AZITHROMYCIN [Concomitant]
     Active Substance: AZITHROMYCIN
     Indication: Infection
  13. DEXLLANT [Concomitant]
     Indication: Gastrooesophageal reflux prophylaxis
  14. PRAVASTATIN [Concomitant]
     Active Substance: PRAVASTATIN
     Indication: Transplant rejection
  15. SPIRONOLACTONE [Concomitant]
     Active Substance: SPIRONOLACTONE
     Indication: Fluid retention
  16. CREON [Concomitant]
     Active Substance: PANCRELIPASE AMYLASE\PANCRELIPASE LIPASE\PANCRELIPASE PROTEASE
     Dosage: 24,000UNITS
  17. ATOVAQUONE [Concomitant]
     Active Substance: ATOVAQUONE
     Indication: Pneumocystis test
     Dosage: 750 MG/5 ML
  18. OLANZAPINE [Concomitant]
     Active Substance: OLANZAPINE
     Indication: Post-traumatic stress disorder
  19. POTASSIUM [Concomitant]
     Active Substance: POTASSIUM
     Indication: Blood potassium decreased
     Dosage: 22.5 ML
  20. POTASSIUM CITRATE [Concomitant]
     Active Substance: POTASSIUM CITRATE
     Indication: Renal lithiasis prophylaxis
     Dosage: 15 MEQ
  21. POTASSIUM CITRATE [Concomitant]
     Active Substance: POTASSIUM CITRATE
     Indication: Blood potassium decreased
     Dosage: 15 MEQ
  22. ELIQUIS [Concomitant]
     Active Substance: APIXABAN
     Indication: Thrombosis
  23. ELIQUIS [Concomitant]
     Active Substance: APIXABAN
     Indication: Cerebrovascular accident
  24. LASIX [Concomitant]
     Active Substance: FUROSEMIDE
     Indication: Fluid retention
     Dosage: 20-60 MG
  25. VITAMINS [Concomitant]
     Active Substance: VITAMINS
  26. COPPER GLUCONATE [Concomitant]
     Active Substance: COPPER GLUCONATE
     Indication: Blood copper decreased
  27. IRON [Concomitant]
     Active Substance: IRON
     Indication: Mineral supplementation
     Dosage: 324 MG*2
  28. NOVALOG/HUMALOG [Concomitant]
  29. LEVEMIR [Concomitant]
     Active Substance: INSULIN DETEMIR
     Indication: Diabetes mellitus
  30. NEUPOGEN/NIVESTYN [Concomitant]
     Indication: White blood cell disorder
  31. NEUPOGEN/NIVESTYN [Concomitant]
     Indication: Neutrophil count abnormal
  32. CAYSTON [Concomitant]
     Active Substance: AZTREONAM
  33. COLISTAN [Concomitant]
  34. MUPIROCIN [Concomitant]
     Active Substance: MUPIROCIN
  35. CEFTRIAXONE [Concomitant]
     Active Substance: CEFTRIAXONE
     Dosage: 500/1000M
  36. BUDESONIDE [Concomitant]
     Active Substance: BUDESONIDE
     Dosage: 25 MG/2 ML
  37. FLUTICASONE [Concomitant]
     Active Substance: FLUTICASONE
     Dosage: 1 SPRAY
  38. REGLAN [Concomitant]
     Active Substance: METOCLOPRAMIDE HYDROCHLORIDE
     Indication: Nausea
     Dosage: 5 MG/5 ML
  39. REGLAN [Concomitant]
     Active Substance: METOCLOPRAMIDE HYDROCHLORIDE
     Indication: Vomiting
     Dosage: 5 MG/5 ML
  40. DIPHENOX-ATROP [Concomitant]
     Indication: Diarrhoea
     Dosage: 2.5/0.025
  41. LEVITRA [Concomitant]
     Active Substance: VARDENAFIL HYDROCHLORIDE
     Indication: Erectile dysfunction
  42. LUNESTA [Concomitant]
     Active Substance: ESZOPICLONE
     Indication: Sleep disorder

REACTIONS (6)
  - Aortic thrombosis [Fatal]
  - Cerebral thrombosis [Fatal]
  - Splenic thrombosis [Fatal]
  - Acute respiratory failure [Fatal]
  - Haemorrhage intracranial [Unknown]
  - White blood cell count increased [Unknown]

NARRATIVE: CASE EVENT DATE: 20220201
